FAERS Safety Report 9232861 (Version 1)
Quarter: 2013Q2

REPORT INFORMATION
  Report Type: Spontaneous
  Country: US (occurrence: None)
  Receive Date: 20130415
  Receipt Date: 20130415
  Transmission Date: 20140414
  Serious: Yes (Other)
  Sender: FDA-Public Use
  Company Number: None

PATIENT
  Age: 61 Year
  Sex: Female
  Weight: 50.8 kg

DRUGS (1)
  1. AMITRIPTYLINE HCL [Suspect]
     Indication: NEURALGIA
     Dosage: 10 MG 1 PER NIGHT
     Dates: start: 20130122, end: 20130413

REACTIONS (2)
  - Muscle twitching [None]
  - Middle insomnia [None]
